FAERS Safety Report 9996152 (Version 5)
Quarter: 2017Q3

REPORT INFORMATION
  Report Type: Spontaneous
  Country: US (occurrence: US)
  Receive Date: 20140311
  Receipt Date: 20170717
  Transmission Date: 20171128
  Serious: Yes (Hospitalization, Other)
  Sender: FDA-Public Use
  Company Number: US-009507513-1403USA000648

PATIENT
  Sex: Female
  Weight: 58.96 kg

DRUGS (4)
  1. FOSAMAX [Suspect]
     Active Substance: ALENDRONATE SODIUM
     Indication: OSTEOPENIA
  2. FOSAMAX [Suspect]
     Active Substance: ALENDRONATE SODIUM
     Indication: OSTEOPOROSIS
     Dosage: 70 MG, QD
     Route: 048
     Dates: end: 20070115
  3. FOSAMAX [Suspect]
     Active Substance: ALENDRONATE SODIUM
     Indication: OSTEOPENIA
  4. FOSAMAX [Suspect]
     Active Substance: ALENDRONATE SODIUM
     Indication: OSTEOPOROSIS
     Dosage: 10 MG, QD
     Route: 048
     Dates: start: 19960229

REACTIONS (16)
  - Anaemia postoperative [Recovering/Resolving]
  - Femur fracture [Unknown]
  - Rib fracture [Unknown]
  - Tooth extraction [Unknown]
  - Spinal disorder [Unknown]
  - Pleural effusion [Unknown]
  - Osteonecrosis of jaw [Unknown]
  - Scoliosis [Unknown]
  - Oral surgery [Unknown]
  - Benign breast lump removal [Unknown]
  - Osteoarthritis [Unknown]
  - Hypothyroidism [Unknown]
  - Hypotension [Recovering/Resolving]
  - Knee arthroplasty [Unknown]
  - Device malfunction [Unknown]
  - Hypercholesterolaemia [Unknown]

NARRATIVE: CASE EVENT DATE: 20030306
